FAERS Safety Report 4464712-6 (Version None)
Quarter: 2004Q3

REPORT INFORMATION
  Report Type: 
  Country: None (occurrence: None)
  Receive Date: 20040929
  Receipt Date: 20040929
  Transmission Date: 20050211
  Serious: Yes (Hospitalization)
  Sender: FDA-Public Use
  Company Number: None

PATIENT
  Sex: Male

DRUGS (15)
  1. ROFECOXIB [Suspect]
  2. APAP TAB [Concomitant]
  3. ASPIRIN [Concomitant]
  4. CALCITRIOL [Concomitant]
  5. CARBIODPA/LEVODOPA [Concomitant]
  6. FERROUS SULFATE TAB [Concomitant]
  7. FUROSEMIDE [Concomitant]
  8. IPRATROPIUM BROMIDE [Concomitant]
  9. METOPROLOL [Concomitant]
  10. NEPHROCAPS [Concomitant]
  11. PROMOD [Concomitant]
  12. PAROXETINE HCL [Concomitant]
  13. SIMVASTATIN [Concomitant]
  14. VERAPAMIL [Concomitant]
  15. VIT E [Concomitant]

REACTIONS (1)
  - RENAL IMPAIRMENT [None]
